FAERS Safety Report 7582924-X (Version None)
Quarter: 2011Q2

REPORT INFORMATION
  Report Type: 
  Country: None (occurrence: None)
  Receive Date: 20110627
  Receipt Date: 20110627
  Transmission Date: 20111010
  Serious: Yes (Other)
  Sender: FDA-Public Use
  Company Number: None

PATIENT
  Sex: Male
  Weight: 77.1115 kg

DRUGS (3)
  1. METHIMAZOLE [Concomitant]
  2. METOPROLOL TARTRATE [Concomitant]
  3. ZOCOR [Suspect]
     Indication: BLOOD CHOLESTEROL INCREASED
     Dosage: 80MG DAILY PO
     Route: 048
     Dates: start: 20110208, end: 20110617

REACTIONS (20)
  - DISSOCIATION [None]
  - PALPITATIONS [None]
  - HYPERACUSIS [None]
  - DISTURBANCE IN ATTENTION [None]
  - MUSCULAR WEAKNESS [None]
  - SKIN BURNING SENSATION [None]
  - PARAESTHESIA [None]
  - PRURITUS [None]
  - EAR DISCOMFORT [None]
  - DYSGEUSIA [None]
  - BURNING SENSATION [None]
  - FATIGUE [None]
  - DIZZINESS [None]
  - MYALGIA [None]
  - DYSPNOEA [None]
  - HEADACHE [None]
  - LOSS OF CONSCIOUSNESS [None]
  - ARTHRALGIA [None]
  - MUSCLE TWITCHING [None]
  - MUSCULOSKELETAL STIFFNESS [None]
